FAERS Safety Report 10335133 (Version 3)
Quarter: 2015Q1

REPORT INFORMATION
  Report Type: Spontaneous
  Country: US (occurrence: US)
  Receive Date: 20140723
  Receipt Date: 20150119
  Transmission Date: 20150720
  Serious: No
  Sender: FDA-Public Use
  Company Number: US-UNITED THERAPEUTICS-UTC-044605

PATIENT
  Sex: Female
  Weight: 64.85 kg

DRUGS (3)
  1. LETAIRIS [Suspect]
     Active Substance: AMBRISENTAN
     Indication: PULMONARY ARTERIAL HYPERTENSION
     Dosage: 5 MG, QD
     Route: 065
     Dates: start: 20110909
  2. REVATIO [Concomitant]
     Active Substance: SILDENAFIL CITRATE
  3. REMODULIN [Suspect]
     Active Substance: TREPROSTINIL
     Dosage: 0.032 ?G/KG/MIN, CONTINUING
     Route: 058
     Dates: start: 20130726

REACTIONS (10)
  - Device dislocation [Unknown]
  - Diarrhoea [Unknown]
  - Infusion site pain [Unknown]
  - Infusion site erythema [Unknown]
  - Infusion site reaction [Unknown]
  - Application site hypersensitivity [Unknown]
  - Infusion site pruritus [Unknown]
  - Injection site discharge [Unknown]
  - Infusion site haemorrhage [Unknown]
  - Infusion site vesicles [Unknown]
